FAERS Safety Report 4615640-4 (Version None)
Quarter: 2005Q1

REPORT INFORMATION
  Report Type: 
  Country: None (occurrence: None)
  Receive Date: 20050317
  Receipt Date: 20050307
  Transmission Date: 20050727
  Serious: Yes (Hospitalization)
  Sender: FDA-Public Use
  Company Number: 2005-BP-02140RO

PATIENT
  Age: 42 Year
  Sex: Male
  Weight: 131.5 kg

DRUGS (26)
  1. METHOTREXATE [Suspect]
     Indication: RHEUMATOID ARTHRITIS
     Dosage: 6 TABLETS A WEEK (15 MG) (2.5 MG, 1
  2. PROLIXIN [Concomitant]
  3. VOLTAREN-XR [Concomitant]
  4. MULTIVITAMIN [Concomitant]
  5. FLAXSEED OIL (LINUM USITATISSIMUM SEED OIL) [Concomitant]
  6. PAPAYA (PAPAYA ENZYME) [Concomitant]
  7. MSM/GLUC (METHYLSULFONYLMETHANE) [Concomitant]
  8. MSN/GLUC (GLUCOSAMINE) [Concomitant]
  9. PREDNISONE [Concomitant]
  10. ADVAIR DISKUS 100/50 [Concomitant]
  11. DCN-100 (PROPACET) [Concomitant]
  12. COMBIVENT [Concomitant]
  13. COGENTIN [Concomitant]
  14. TOPROL-XL [Concomitant]
  15. CAPTOPRIL [Concomitant]
  16. COLCHICINE [Concomitant]
  17. POTASSIUM CHLORIDE [Concomitant]
  18. CALCIUM MG-ZINC (CALCIUM MAGNESIUM ZINC) [Concomitant]
  19. NU-IRON (POLYSACCHARIDE-IRON COMPLEX) [Concomitant]
  20. PREVACID [Concomitant]
  21. LORAZEPAM [Concomitant]
  22. LASIX [Concomitant]
  23. THYROID TAB [Concomitant]
  24. VITAMIN B12 [Concomitant]
  25. THORAZINE [Concomitant]
  26. ZOLOFT [Concomitant]

REACTIONS (6)
  - CARDIAC FAILURE CONGESTIVE [None]
  - CELLULITIS [None]
  - LUNG INFECTION [None]
  - PNEUMONIA [None]
  - PULMONARY THROMBOSIS [None]
  - THROMBOSIS [None]
